FAERS Safety Report 8584085-7 (Version None)
Quarter: 2012Q3

REPORT INFORMATION
  Report Type: 
  Country: None (occurrence: None)
  Receive Date: 20120810
  Receipt Date: 20120725
  Transmission Date: 20120928
  Serious: No
  Sender: FDA-Public Use
  Company Number: US-009507513-2011SP031683

PATIENT

DRUGS (2)
  1. RIBAVIRIN (+) INTERFERON ALFA-2B [Suspect]
     Indication: HEPATITIS C
     Dosage: 800 MG, QD
     Route: 048
     Dates: start: 20100511, end: 20101118
  2. PEGASYS [Suspect]
     Indication: HEPATITIS C
     Dosage: UNK UNK, QW
     Dates: start: 20100511, end: 20101118

REACTIONS (4)
  - BLOOD CREATININE DECREASED [None]
  - DYSPNOEA [None]
  - VITAMIN D DECREASED [None]
  - MATERNAL EXPOSURE DURING PREGNANCY [None]
